FAERS Safety Report 7731045-1 (Version None)
Quarter: 2011Q3

REPORT INFORMATION
  Report Type: 
  Country: None (occurrence: None)
  Receive Date: 20110906
  Receipt Date: 20110906
  Transmission Date: 20111222
  Serious: Yes (Life-Threatening)
  Sender: FDA-Public Use
  Company Number: None

PATIENT
  Age: 65 Year
  Sex: Male
  Weight: 61.234 kg

DRUGS (1)
  1. PRADAXA [Suspect]
     Indication: ATRIAL FIBRILLATION
     Dosage: 150 MGS
     Route: 048
     Dates: start: 20110616, end: 20110901

REACTIONS (4)
  - PANCREATIC CARCINOMA [None]
  - SPLEEN DISORDER [None]
  - GALLBLADDER DISORDER [None]
  - TYPE 1 DIABETES MELLITUS [None]
